FAERS Safety Report 9703604 (Version 1)
Quarter: 2013Q4

REPORT INFORMATION
  Report Type: Spontaneous
  Country: US (occurrence: US)
  Receive Date: 20131122
  Receipt Date: 20131122
  Transmission Date: 20140711
  Serious: No
  Sender: FDA-Public Use
  Company Number: US-PFIZER INC-2013334049

PATIENT
  Age: 46 Year
  Sex: Female
  Weight: 96 kg

DRUGS (4)
  1. DEPO-PROVERA [Suspect]
     Indication: MENORRHAGIA
     Dosage: UNK, EVERY 3 MONTHS
     Dates: start: 2009
  2. LYRICA [Concomitant]
     Indication: NERVE INJURY
     Dosage: UNK, 3X/DAY
  3. LYRICA [Concomitant]
     Indication: PAIN
  4. WELLBUTRIN [Concomitant]
     Indication: ANXIETY DISORDER
     Dosage: 150 MG, 2X/DAY

REACTIONS (5)
  - Anaemia [Unknown]
  - Malaise [Unknown]
  - Weight decreased [Unknown]
  - Blood cholesterol increased [Unknown]
  - Intentional drug misuse [Unknown]
